FAERS Safety Report 25916719 (Version 1)
Quarter: 2025Q4

REPORT INFORMATION
  Report Type: Spontaneous
  Country: US (occurrence: US)
  Receive Date: 20251014
  Receipt Date: 20251014
  Transmission Date: 20260117
  Serious: No
  Sender: TOLMAR
  Company Number: US-Tolmar-TLM-2025-07115

PATIENT

DRUGS (3)
  1. ELIGARD [Suspect]
     Active Substance: LEUPROLIDE ACETATE
     Indication: Prostate cancer
     Dosage: EXPIRATION DATE: UNK; MAR-2027; 31-MAR-2027
     Dates: end: 20250623
  2. ELIGARD [Suspect]
     Active Substance: LEUPROLIDE ACETATE
     Dosage: LAST THERAPY
     Dates: start: 20250623, end: 20250623
  3. DEVICE [Suspect]
     Active Substance: DEVICE
     Indication: Prostate cancer
     Dosage: EXPIRATION DATE: UNK; MAR-2027; 31-MAR-2027

REACTIONS (2)
  - Intercepted medication error [Unknown]
  - Therapy cessation [Unknown]
